FAERS Safety Report 10032183 (Version 1)
Quarter: 2014Q1

REPORT INFORMATION
  Report Type: Report from Study
  Country: US (occurrence: US)
  Receive Date: 20140324
  Receipt Date: 20140324
  Transmission Date: 20141002
  Serious: Yes (Other)
  Sender: FDA-Public Use
  Company Number: US-ABBVIE-14P-163-1212622-00

PATIENT
  Sex: Female

DRUGS (18)
  1. HUMIRA [Suspect]
     Indication: RHEUMATOID ARTHRITIS
     Dates: start: 2012
  2. HUMIRA [Suspect]
     Dates: start: 201311
  3. METFORMIN [Concomitant]
     Indication: DIABETES MELLITUS
     Route: 048
  4. MICARDIS [Concomitant]
     Indication: HYPERTENSION
     Dosage: 80 MG/25 MG
     Route: 048
  5. COLAZAL [Concomitant]
     Indication: CROHN^S DISEASE
     Route: 048
  6. GABAPENTIN [Concomitant]
     Indication: FIBROMYALGIA
     Dosage: 400MG 2 TABS IN THE MORNING AND 800MG 1 TAB AT BEDTIME
  7. OXYCONTIN [Concomitant]
     Indication: PAIN
     Route: 048
  8. OXYCONTIN [Concomitant]
  9. PERCOCET [Concomitant]
     Indication: PAIN
     Route: 048
  10. FOLIC ACID [Concomitant]
     Indication: PRODUCT USED FOR UNKNOWN INDICATION
     Route: 048
  11. ALLEGRA [Concomitant]
     Indication: HYPERSENSITIVITY
     Route: 048
  12. DEXILANT [Concomitant]
     Indication: DYSPEPSIA
     Route: 048
  13. COLCRYS [Concomitant]
     Indication: GOUT
     Route: 048
  14. ALLOPURINOL [Concomitant]
     Indication: GOUT
     Route: 048
  15. DULERAL [Concomitant]
     Indication: ASTHMA
  16. DULERAL [Concomitant]
     Indication: CHRONIC OBSTRUCTIVE PULMONARY DISEASE
  17. PREDNISONE [Concomitant]
     Indication: RHEUMATOID ARTHRITIS
     Route: 048
  18. PREDNISONE [Concomitant]
     Indication: CROHN^S DISEASE

REACTIONS (4)
  - Haemorrhage [Unknown]
  - Knee arthroplasty [Recovered/Resolved]
  - Therapy change [Unknown]
  - Device issue [Unknown]
